FAERS Safety Report 14715608 (Version 1)
Quarter: 2018Q2

REPORT INFORMATION
  Report Type: Spontaneous
  Country: US (occurrence: US)
  Receive Date: 20180404
  Receipt Date: 20180404
  Transmission Date: 20180711
  Serious: Yes (Hospitalization, Other)
  Sender: FDA-Public Use
  Company Number: US-ASTRAZENECA-2018SE39259

PATIENT
  Age: 29438 Day
  Sex: Female

DRUGS (3)
  1. BYDUREON [Suspect]
     Active Substance: EXENATIDE
     Indication: TYPE 2 DIABETES MELLITUS
     Route: 058
     Dates: end: 20180205
  2. HUMALOG [Concomitant]
     Active Substance: INSULIN LISPRO
     Dosage: THREE TIMES A DAY BEFORE MEALS, BY INJECTION
  3. LANTUS [Concomitant]
     Active Substance: INSULIN GLARGINE
     Dosage: ONE INJECTION AT BEDTIME

REACTIONS (17)
  - Speech disorder [Unknown]
  - Weight decreased [Unknown]
  - Acute kidney injury [Unknown]
  - Somnolence [Unknown]
  - Dehydration [Unknown]
  - Liver disorder [Unknown]
  - Pain [Unknown]
  - Constipation [Unknown]
  - Malaise [Unknown]
  - Electrolyte imbalance [Unknown]
  - B-cell lymphoma [Unknown]
  - Acute kidney injury [Unknown]
  - Dysgraphia [Unknown]
  - Fibroma [Unknown]
  - Abdominal pain [Unknown]
  - Pancreatitis [Unknown]
  - Renal impairment [Unknown]

NARRATIVE: CASE EVENT DATE: 20180212
